FAERS Safety Report 23615183 (Version 1)
Quarter: 2024Q1

REPORT INFORMATION
  Report Type: Spontaneous
  Country: NL (occurrence: NL)
  Receive Date: 20240311
  Receipt Date: 20240311
  Transmission Date: 20240410
  Serious: Yes (Other)
  Sender: FDA-Public Use
  Company Number: NL-CELLTRION INC.-2023NL025585

PATIENT

DRUGS (22)
  1. RITUXIMAB [Interacting]
     Active Substance: RITUXIMAB
     Indication: Non-Hodgkin^s lymphoma
     Dosage: UNK
     Route: 064
  2. RITUXIMAB [Interacting]
     Active Substance: RITUXIMAB
     Indication: Foetal exposure during pregnancy
     Dosage: RTX CONCENTRATION: {2WK: 81 MCG/ML
     Route: 064
  3. RITUXIMAB [Interacting]
     Active Substance: RITUXIMAB
     Dosage: RTX CONCENTRATION: 1-3 MO: 2.4 MCG/ML
     Route: 064
  4. RITUXIMAB [Interacting]
     Active Substance: RITUXIMAB
     Dosage: RTX CONCENTRATION: 4-6 MO: 0.4 MCG/ML
     Route: 064
  5. RITUXIMAB [Interacting]
     Active Substance: RITUXIMAB
     Dosage: MATERNAL EXPOSURE DURING PREGNANCY: UNK
     Route: 064
  6. RITUXIMAB [Interacting]
     Active Substance: RITUXIMAB
     Dosage: UNK
     Route: 064
  7. DOXORUBICIN [Interacting]
     Active Substance: DOXORUBICIN
     Indication: Non-Hodgkin^s lymphoma
     Dosage: MATERNAL EXPOSURE DURING PREGNANCY: UNK
     Route: 064
  8. DOXORUBICIN [Interacting]
     Active Substance: DOXORUBICIN
     Indication: B-cell lymphoma
     Dosage: UNK
     Route: 064
  9. DOXORUBICIN [Interacting]
     Active Substance: DOXORUBICIN
     Indication: Foetal exposure during pregnancy
     Dosage: UNK
     Route: 065
  10. VINCRISTINE [Interacting]
     Active Substance: VINCRISTINE
     Indication: Non-Hodgkin^s lymphoma
     Dosage: UNK
     Route: 064
  11. VINCRISTINE [Interacting]
     Active Substance: VINCRISTINE
     Dosage: UNK
     Route: 065
  12. CYCLOPHOSPHAMIDE [Interacting]
     Active Substance: CYCLOPHOSPHAMIDE
     Indication: Non-Hodgkin^s lymphoma
     Dosage: MATERNAL EXPOSURE DURING PREGNANCY: UNK
     Route: 064
  13. CYCLOPHOSPHAMIDE [Interacting]
     Active Substance: CYCLOPHOSPHAMIDE
     Indication: Foetal exposure during pregnancy
     Dosage: UNK
     Route: 065
  14. CYCLOPHOSPHAMIDE [Interacting]
     Active Substance: CYCLOPHOSPHAMIDE
     Dosage: UNK
     Route: 064
  15. PREDNISONE [Interacting]
     Active Substance: PREDNISONE
     Indication: Non-Hodgkin^s lymphoma
     Dosage: UNK
     Route: 064
  16. PREDNISONE [Interacting]
     Active Substance: PREDNISONE
     Indication: Foetal exposure during pregnancy
     Dosage: MATERNAL EXPOSURE DURING PREGNANCY: UNK
     Route: 064
  17. PREDNISONE [Interacting]
     Active Substance: PREDNISONE
     Dosage: UNK
     Route: 065
  18. PNEUMOCOCCAL VACCINE POLYVALENT [Interacting]
     Active Substance: PNEUMOCOCCAL VACCINE POLYVALENT
     Indication: Prophylaxis
     Dosage: UNK
     Route: 065
  19. PNEUMOCOCCAL VACCINE POLYVALENT [Interacting]
     Active Substance: PNEUMOCOCCAL VACCINE POLYVALENT
     Indication: Prophylaxis
     Route: 065
  20. VINCRISTINE SULFATE [Interacting]
     Active Substance: VINCRISTINE SULFATE
     Indication: Foetal exposure during pregnancy
     Dosage: MATERNAL EXPOSURE DURING PREGNANCY: UNK
     Route: 064
  21. VINCRISTINE SULFATE [Interacting]
     Active Substance: VINCRISTINE SULFATE
     Dosage: UNK
     Route: 065
  22. COTRIMOXAZOLE [Concomitant]
     Active Substance: SULFAMETHOXAZOLE\TRIMETHOPRIM
     Indication: Prophylaxis
     Route: 065

REACTIONS (9)
  - Hypoglobulinaemia [Recovered/Resolved]
  - Premature baby [Recovered/Resolved]
  - Hypogammaglobulinaemia [Recovered/Resolved]
  - Neutropenia [Recovered/Resolved]
  - Lymphopenia [Recovered/Resolved]
  - Vaccine interaction [Unknown]
  - Vaccination failure [Unknown]
  - Foetal exposure during pregnancy [Recovered/Resolved]
  - Intentional product use issue [Unknown]
